FAERS Safety Report 6617406-2 (Version None)
Quarter: 2010Q1

REPORT INFORMATION
  Report Type: 
  Country: None (occurrence: None)
  Receive Date: 20100307
  Receipt Date: 20100217
  Transmission Date: 20100710
  Serious: Yes (Other)
  Sender: FDA-Public Use
  Company Number: PL-BAYER-201016885GPV

PATIENT
  Age: 3 Year
  Sex: Male

DRUGS (5)
  1. CAMPATH [Suspect]
     Indication: STEM CELL TRANSPLANT
     Dosage: 5 X 0.2 MG/KG
  2. FLUDARABINE [Suspect]
     Indication: STEM CELL TRANSPLANT
  3. MELPHALAN [Suspect]
     Indication: STEM CELL TRANSPLANT
  4. CYCLOSPORINE [Concomitant]
     Indication: PROPHYLAXIS AGAINST GRAFT VERSUS HOST DISEASE
  5. METHOTREXAT [Concomitant]
     Indication: PROPHYLAXIS AGAINST GRAFT VERSUS HOST DISEASE

REACTIONS (8)
  - ACUTE GRAFT VERSUS HOST DISEASE [None]
  - GRANULOCYTOPENIA [None]
  - IDIOPATHIC PNEUMONIA SYNDROME [None]
  - MUCOSAL INFLAMMATION [None]
  - PANCYTOPENIA [None]
  - STEM CELL TRANSPLANT [None]
  - SURGICAL PROCEDURE REPEATED [None]
  - TRANSPLANT REJECTION [None]
